FAERS Safety Report 20742441 (Version 1)
Quarter: 2022Q2

REPORT INFORMATION
  Report Type: Spontaneous
  Country: CA (occurrence: CA)
  Receive Date: 20220424
  Receipt Date: 20220424
  Transmission Date: 20220720
  Serious: Yes (Other)
  Sender: FDA-Public Use
  Company Number: CA-TEVA-2022-CA-2028832

PATIENT
  Age: 77 Year
  Sex: Male

DRUGS (1)
  1. ATENOLOL [Suspect]
     Active Substance: ATENOLOL
     Indication: Coronary artery disease
     Route: 048

REACTIONS (4)
  - Atrioventricular block [Unknown]
  - Bradycardia [Unknown]
  - Cerebrovascular accident [Unknown]
  - Drug level above therapeutic [Unknown]
